FAERS Safety Report 4651124-5 (Version None)
Quarter: 2005Q2

REPORT INFORMATION
  Report Type: 
  Country: None (occurrence: None)
  Receive Date: 20050503
  Receipt Date: 20050423
  Transmission Date: 20051028
  Serious: Yes (Death)
  Sender: FDA-Public Use
  Company Number: US-JNJFOC-20050407248

PATIENT
  Age: 29 Year
  Sex: Male

DRUGS (2)
  1. TYLENOL SINUS SEVERE CONGESTION [Suspect]
     Indication: DRUG USE FOR UNKNOWN INDICATION
  2. ALCOHOL [Suspect]
     Indication: DRUG USE FOR UNKNOWN INDICATION

REACTIONS (4)
  - ABNORMAL BEHAVIOUR [None]
  - ACCIDENTAL DEATH [None]
  - HAEMORRHAGE [None]
  - HEPATIC HAEMORRHAGE [None]
